FAERS Safety Report 9909650 (Version 2)
Quarter: 2014Q2

REPORT INFORMATION
  Report Type: Spontaneous
  Country: JP (occurrence: JP)
  Receive Date: 20140219
  Receipt Date: 20140403
  Transmission Date: 20141212
  Serious: Yes (Other)
  Sender: FDA-Public Use
  Company Number: JP-GLAXOSMITHKLINE-B0969377A

PATIENT
  Age: 15 Year
  Sex: Female

DRUGS (7)
  1. LAMICTAL [Suspect]
     Indication: CONVULSION
     Dosage: 2.5MG TWICE PER DAY
     Route: 048
     Dates: start: 20130816
  2. SODIUM VALPROATE [Concomitant]
     Indication: EPILEPSY
     Dosage: 425MG TWICE PER DAY
     Route: 048
  3. L-CARTIN [Concomitant]
     Dosage: 300MG THREE TIMES PER DAY
     Route: 048
  4. CLEANAL [Concomitant]
     Dosage: 200MG THREE TIMES PER DAY
     Route: 048
  5. ONON [Concomitant]
     Dosage: 75MG TWICE PER DAY
     Route: 048
  6. CHINESE MEDICINE [Concomitant]
     Dosage: 1IUAX THREE TIMES PER DAY
     Route: 048
  7. MIYA BM [Concomitant]
     Route: 048

REACTIONS (1)
  - Ileus paralytic [Recovered/Resolved]
